FAERS Safety Report 6081035-2 (Version None)
Quarter: 2009Q1

REPORT INFORMATION
  Report Type: 
  Country: None (occurrence: None)
  Receive Date: 20090217
  Receipt Date: 20090213
  Transmission Date: 20090719
  Serious: Yes (Death, Hospitalization, Other)
  Sender: FDA-Public Use
  Company Number: PHHY2009JP03906

PATIENT
  Age: 77 Year
  Sex: Male

DRUGS (3)
  1. ZOMETA [Suspect]
     Indication: MULTIPLE MYELOMA
     Dosage: 48 MG
     Route: 042
     Dates: start: 20060701, end: 20070717
  2. AREDIA [Suspect]
     Dosage: 1530 MG, UNK
     Route: 042
     Dates: start: 20030301, end: 20040801
  3. BISPHONAL [Suspect]
     Dosage: 420 MG, UNK
     Route: 042
     Dates: start: 20040901, end: 20060601

REACTIONS (12)
  - BONE DISORDER [None]
  - COMPUTERISED TOMOGRAM ABNORMAL [None]
  - DYSPNOEA EXERTIONAL [None]
  - GINGIVAL PAIN [None]
  - GINGIVAL SWELLING [None]
  - INTERSTITIAL LUNG DISEASE [None]
  - MYELITIS [None]
  - OSTEONECROSIS [None]
  - PERIODONTITIS [None]
  - RESPIRATORY FAILURE [None]
  - TOOTH LOSS [None]
  - WEIGHT DECREASED [None]
